FAERS Safety Report 9631644 (Version 1)
Quarter: 2013Q4

REPORT INFORMATION
  Report Type: Spontaneous
  Country: JP (occurrence: None)
  Receive Date: 20131015
  Receipt Date: 20131015
  Transmission Date: 20140711
  Serious: Yes (Hospitalization)
  Sender: FDA-Public Use
  Company Number: FK201304554

PATIENT
  Age: 67 Year
  Sex: Male

DRUGS (6)
  1. CISPLATIN [Suspect]
     Indication: SMALL CELL LUNG CANCER
  2. FLUVOXAMINE [Suspect]
     Indication: DEPRESSION
  3. LEVOTHYROXINE SODIUM (LEVOTHYROXINE SODIUM) [Concomitant]
  4. CARBOPLATIN (CARBOPLATIN) [Concomitant]
  5. ETOPOSIDE (ETOPOSIDE) [Concomitant]
  6. IRINOTECAN (IRINOTECAN) [Concomitant]

REACTIONS (1)
  - Serotonin syndrome [None]
